FAERS Safety Report 10676661 (Version 3)
Quarter: 2015Q2

REPORT INFORMATION
  Report Type: Spontaneous
  Country: US (occurrence: US)
  Receive Date: 20141226
  Receipt Date: 20150428
  Transmission Date: 20150821
  Serious: Yes (Other)
  Sender: FDA-Public Use
  Company Number: US-BAYER-2014-189177

PATIENT
  Age: 36 Year
  Sex: Female
  Weight: 81.63 kg

DRUGS (3)
  1. MULTIVITAMIN [Concomitant]
     Active Substance: VITAMINS
  2. MIRENA [Suspect]
     Active Substance: LEVONORGESTREL
     Indication: CONTRACEPTION
     Dosage: 20 MCG/24HR, CONT
     Route: 015
     Dates: start: 20140116
  3. FISH OIL [Concomitant]
     Active Substance: FISH OIL

REACTIONS (8)
  - Genital haemorrhage [None]
  - Pelvic pain [None]
  - Coital bleeding [None]
  - Device dislocation [None]
  - Uterine cervical squamous metaplasia [None]
  - Human papilloma virus test positive [None]
  - Dyspareunia [None]
  - Fatigue [None]

NARRATIVE: CASE EVENT DATE: 2014
